FAERS Safety Report 8966285 (Version 1)
Quarter: 2012Q4

REPORT INFORMATION
  Report Type: 
  Country: ES (occurrence: ES)
  Receive Date: 20121217
  Receipt Date: 20121217
  Transmission Date: 20130627
  Serious: Yes (Other)
  Sender: FDA-Public Use
  Company Number: ES-ROXANE LABORATORIES, INC.-2012-RO-02575RO

PATIENT
  Age: 52 Year
  Sex: Female

DRUGS (8)
  1. RISPERIDONE [Suspect]
     Indication: MAJOR DEPRESSION
     Dosage: 3 mg
  2. PROPRANOLOL [Suspect]
     Indication: AKATHISIA
     Dosage: 120 mg
  3. FLUOXETINE [Suspect]
     Indication: MAJOR DEPRESSION
     Dosage: 20 mg
  4. TETRABENAZINE [Suspect]
     Indication: AKATHISIA
     Dosage: 75 mg
  5. BIPERIDEN [Suspect]
     Indication: AKATHISIA
     Dosage: 20 mg
  6. CLONAZEPAM [Suspect]
     Indication: AKATHISIA
     Dosage: 1.5 mg
  7. CLONAZEPAM [Suspect]
     Indication: DEPRESSION
  8. TRAZODONE [Suspect]
     Indication: MAJOR DEPRESSION
     Dosage: 100 mg

REACTIONS (5)
  - Akathisia [Recovered/Resolved]
  - Depressive symptom [Recovered/Resolved]
  - Suicidal ideation [Recovered/Resolved]
  - Somnolence [Unknown]
  - Fatigue [Unknown]
